FAERS Safety Report 7533633-4 (Version None)
Quarter: 2011Q2

REPORT INFORMATION
  Report Type: 
  Country: None (occurrence: None)
  Receive Date: 20110608
  Receipt Date: 20060316
  Transmission Date: 20111010
  Serious: Yes (Hospitalization)
  Sender: FDA-Public Use
  Company Number: PHFR2005GB03818

PATIENT
  Sex: Male

DRUGS (9)
  1. ALBUTEROL [Concomitant]
     Indication: ASTHMA
     Dosage: 100UG DAILY
  2. CARBAMAZEPINE [Concomitant]
     Indication: DYSKINESIA
     Route: 065
  3. PREDNISOLONE [Concomitant]
     Indication: ASTHMA
     Dosage: 5MG DAILY
     Route: 048
  4. CLOZAPINE [Suspect]
     Indication: SCHIZOPHRENIA
     Dosage: 500MG DAILY
     Route: 065
     Dates: start: 20040123
  5. WARFARIN SODIUM [Concomitant]
     Indication: DEEP VEIN THROMBOSIS
     Route: 048
  6. OMEPRAZOLE [Concomitant]
     Indication: DYSPEPSIA
     Dosage: 20MG DAILY
     Route: 048
  7. UNIPHYLLIN ^MUNDIPHARMA^ [Concomitant]
     Indication: ASTHMA
     Dosage: 200 MG, BID
  8. MIRTAZAPINE [Concomitant]
     Indication: DEPRESSION
     Dosage: 45 MG
     Route: 048
  9. FRAGMIN [Concomitant]
     Indication: DEEP VEIN THROMBOSIS

REACTIONS (7)
  - CONSTIPATION [None]
  - CONVULSION [None]
  - INFLAMMATORY BOWEL DISEASE [None]
  - RECTAL HAEMORRHAGE [None]
  - DYSKINESIA [None]
  - CROHN'S DISEASE [None]
  - INTESTINAL ULCER [None]
